FAERS Safety Report 5270969-4 (Version None)
Quarter: 2007Q1

REPORT INFORMATION
  Report Type: 
  Country: None (occurrence: None)
  Receive Date: 20070321
  Receipt Date: 20070314
  Transmission Date: 20070707
  Serious: Yes (Death, Hospitalization, Other)
  Sender: FDA-Public Use
  Company Number: US-ELI_LILLY_AND_COMPANY-US200604002344

PATIENT
  Age: 53 Year
  Sex: Male
  Weight: 47.165 kg

DRUGS (3)
  1. PROZAC [Concomitant]
     Dates: start: 19980902, end: 20000205
  2. PAXIL [Concomitant]
     Dates: start: 20000211, end: 20000430
  3. ZYPREXA [Suspect]
     Indication: DEPRESSION
     Dosage: 2.5 MG, UNK
     Dates: start: 19980707, end: 20010616

REACTIONS (6)
  - CORONARY ANGIOPLASTY [None]
  - DEATH [None]
  - DIABETES MELLITUS [None]
  - HYPERGLYCAEMIA [None]
  - PANCREATITIS [None]
  - VASCULAR BYPASS GRAFT [None]
